FAERS Safety Report 9062463 (Version 1)
Quarter: 2013Q1

REPORT INFORMATION
  Report Type: Spontaneous
  Country: BR (occurrence: BR)
  Receive Date: 20130213
  Receipt Date: 20130213
  Transmission Date: 20140127
  Serious: Yes (Hospitalization, Other)
  Sender: FDA-Public Use
  Company Number: 2013SP001554

PATIENT
  Age: 19 Month
  Sex: Female

DRUGS (4)
  1. VANCOMYCIN [Suspect]
     Indication: PYREXIA
     Dates: start: 200912
  2. CEFEPIME [Suspect]
     Indication: PYREXIA
     Dates: start: 200912
  3. MEROPENEM [Suspect]
     Indication: STAPHYLOCOCCUS TEST POSITIVE
  4. AMPHOTERICIN B [Suspect]
     Indication: STAPHYLOCOCCUS TEST POSITIVE

REACTIONS (3)
  - Candida infection [Recovered/Resolved]
  - Staphylococcal infection [Recovered/Resolved]
  - Pleural effusion [Recovered/Resolved]
